FAERS Safety Report 9464732 (Version 1)
Quarter: 2013Q3

REPORT INFORMATION
  Report Type: Spontaneous
  Country: JP (occurrence: JP)
  Receive Date: 20130819
  Receipt Date: 20130819
  Transmission Date: 20140515
  Serious: Yes (Death)
  Sender: FDA-Public Use
  Company Number: JP-EISAI INC-E7389-04137-SPO-JP

PATIENT
  Age: 84 Year
  Sex: Female
  Weight: 50 kg

DRUGS (13)
  1. HALAVEN [Suspect]
     Indication: BREAST CANCER
     Route: 041
     Dates: start: 20130517, end: 20130614
  2. ZOMETA [Concomitant]
     Indication: METASTASES TO BONE
     Route: 041
     Dates: start: 20130524, end: 20130614
  3. QVAR [Concomitant]
     Indication: ASTHMA
     Route: 055
     Dates: end: 20130628
  4. SEREVENT [Concomitant]
     Indication: ASTHMA
     Route: 055
     Dates: end: 20130628
  5. MARZULENE [Concomitant]
     Indication: GASTRITIS
     Route: 048
     Dates: end: 20130628
  6. GASMOTIN [Concomitant]
     Indication: GASTRITIS
     Route: 048
     Dates: end: 20130628
  7. PARIET [Concomitant]
     Indication: GASTRITIS
     Route: 048
     Dates: end: 20130628
  8. BLOPRESS [Concomitant]
     Indication: HYPERTENSION
     Route: 048
     Dates: end: 20130628
  9. EVISTA [Concomitant]
     Indication: OSTEOPOROSIS
     Route: 048
     Dates: end: 20130628
  10. BONALON [Concomitant]
     Indication: OSTEOPOROSIS
     Route: 048
     Dates: end: 20130628
  11. DAIOKANZOTO [Concomitant]
     Indication: MALAISE
     Route: 048
     Dates: end: 20130628
  12. URSO [Concomitant]
     Indication: LIVER DISORDER
     Route: 048
     Dates: start: 20130121, end: 20130628
  13. MOHRUS TAPE [Concomitant]
     Indication: BACK PAIN
     Route: 061
     Dates: start: 20121217, end: 20130628

REACTIONS (1)
  - Interstitial lung disease [Fatal]
